FAERS Safety Report 9202736 (Version 1)
Quarter: 2013Q2

REPORT INFORMATION
  Report Type: Spontaneous
  Country: IT (occurrence: IT)
  Receive Date: 20130401
  Receipt Date: 20130401
  Transmission Date: 20140414
  Serious: Yes (Other)
  Sender: FDA-Public Use
  Company Number: IT-MYLANLABS-2013S1006177

PATIENT
  Age: 16 Year
  Sex: Female

DRUGS (2)
  1. OXYBUTYNIN HYDROCHLORIDE, S- [Suspect]
     Indication: PRODUCT USED FOR UNKNOWN INDICATION
     Dates: start: 20120517, end: 20130314
  2. TYSABRI [Suspect]
     Indication: PRODUCT USED FOR UNKNOWN INDICATION
     Dosage: CYCLIC
     Dates: start: 20111201, end: 20130222

REACTIONS (2)
  - Breast cancer [Unknown]
  - Breast cancer female [None]
